FAERS Safety Report 8266496-2 (Version None)
Quarter: 2012Q2

REPORT INFORMATION
  Report Type: 
  Country: None (occurrence: None)
  Receive Date: 20120406
  Receipt Date: 20120328
  Transmission Date: 20120825
  Serious: Yes (Disabling)
  Sender: FDA-Public Use
  Company Number: ZA-ASTRAZENECA-2012SE21244

PATIENT
  Age: 50 Year
  Sex: Male

DRUGS (1)
  1. ATACAND [Suspect]
     Indication: HYPERTENSION
     Route: 048

REACTIONS (2)
  - LIBIDO DECREASED [None]
  - ERECTILE DYSFUNCTION [None]
